FAERS Safety Report 23403714 (Version 1)
Quarter: 2024Q1

REPORT INFORMATION
  Report Type: Spontaneous
  Country: ES (occurrence: ES)
  Receive Date: 20240116
  Receipt Date: 20240116
  Transmission Date: 20240410
  Serious: Yes (Other)
  Sender: FDA-Public Use
  Company Number: ES-CELLTRION INC.-2024ES000718

PATIENT

DRUGS (2)
  1. BEVACIZUMAB [Suspect]
     Active Substance: BEVACIZUMAB
     Indication: Neurofibromatosis
     Dosage: REDUCING THE DOSE (ADDITIONAL INFORMATION ON DRUG (FREE TEXT): DOSAGE1: UNIT=NOT AVAILABLE)
     Route: 065
  2. BEVACIZUMAB [Suspect]
     Active Substance: BEVACIZUMAB
     Dosage: UNK (ADDITIONAL INFORMATION ON DRUG (FREE TEXT): DOSAGE2: UNIT=NOT AVAILABLE)
     Route: 065

REACTIONS (5)
  - Cryoglobulinaemia [Unknown]
  - Glomerulonephritis [Unknown]
  - Neurofibromatosis [Unknown]
  - Hypertension [Unknown]
  - Off label use [Unknown]
